FAERS Safety Report 9711956 (Version 2)
Quarter: 2013Q4

REPORT INFORMATION
  Report Type: Spontaneous
  Country: US (occurrence: US)
  Receive Date: 20131126
  Receipt Date: 20131126
  Transmission Date: 20140711
  Serious: No
  Sender: FDA-Public Use
  Company Number: US-PFIZER INC-2013073809

PATIENT
  Age: 88 Year
  Sex: Female

DRUGS (3)
  1. LYRICA [Suspect]
     Dosage: 150 MG, DAILY [(T WITH A DOT OVER IT) Q AM AND (T WITH TWO DOTS OVER IT) Q PM]
  2. LISINOPRIL [Concomitant]
     Dosage: UNK
  3. MOBIC [Concomitant]
     Dosage: UNK

REACTIONS (1)
  - Corneal disorder [Unknown]
